FAERS Safety Report 8238944-5 (Version None)
Quarter: 2012Q1

REPORT INFORMATION
  Report Type: 
  Country: None (occurrence: None)
  Receive Date: 20120327
  Receipt Date: 20120313
  Transmission Date: 20120608
  Serious: Yes (Hospitalization)
  Sender: FDA-Public Use
  Company Number: GB-ROCHE-1050498

PATIENT
  Sex: Male
  Weight: 62 kg

DRUGS (4)
  1. EPIRUBICIN HYDROCHLORIDE [Suspect]
     Indication: GASTRIC CANCER
     Dosage: 87 UNITS NOT PROVIDED, LAST DOSE PRIOR TO SAE: 04/OCT/2011
     Route: 042
     Dates: start: 20111004
  2. CISPLATIN [Suspect]
     Indication: GASTRIC CANCER
     Dosage: 104 UNITS NOT PROVIDED, LAST DOSE PRIOR TO SAE: 04/OCT/2011
     Route: 042
     Dates: start: 20111004
  3. XELODA [Suspect]
     Indication: GASTRIC CANCER
     Dosage: 1000 UNITS NOT PROVIDED, LAST DOSE PRIOR TO SAE: 19/OCT/2011
     Route: 048
     Dates: start: 20111004
  4. AVASTIN [Suspect]
     Indication: GASTRIC CANCER
     Dosage: 464 UNITS NOT PROVIDED, LAST DOSE PRIOR TO SAE: 04/OCT/2011
     Route: 042
     Dates: start: 20111004

REACTIONS (1)
  - PERIPHERAL ISCHAEMIA [None]
